FAERS Safety Report 23204654 (Version 2)
Quarter: 2024Q1

REPORT INFORMATION
  Report Type: Spontaneous
  Country: US (occurrence: US)
  Receive Date: 20231120
  Receipt Date: 20240103
  Transmission Date: 20240410
  Serious: No
  Sender: FDA-Public Use
  Company Number: US-INSUD PHARMA-2311US07883

PATIENT

DRUGS (3)
  1. PROGESTERONE [Suspect]
     Active Substance: PROGESTERONE
     Indication: Prevention of endometrial hyperplasia
     Dosage: 100 MILLIGRAM, QD
     Route: 048
     Dates: start: 2018, end: 20231110
  2. VITAMIN D NOS [Suspect]
     Active Substance: VITAMIN D NOS
     Indication: Product used for unknown indication
     Dosage: UNK
     Route: 065
     Dates: end: 20231110
  3. ESTROGEN NOS [Concomitant]
     Active Substance: ESTROGENS

REACTIONS (11)
  - Increased viscosity of upper respiratory secretion [Recovering/Resolving]
  - Dysphonia [Recovering/Resolving]
  - Throat tightness [Recovered/Resolved]
  - Dyspnoea [Recovered/Resolved]
  - Hypersensitivity [Recovering/Resolving]
  - Breast pain [Recovered/Resolved]
  - Breast tenderness [Recovered/Resolved]
  - Chromaturia [Recovered/Resolved]
  - Poor quality product administered [Unknown]
  - Product physical consistency issue [Unknown]
  - Product lot number issue [Unknown]

NARRATIVE: CASE EVENT DATE: 20230101
